FAERS Safety Report 12843878 (Version 2)
Quarter: 2016Q4

REPORT INFORMATION
  Report Type: Report from Study
  Country: IT (occurrence: IT)
  Receive Date: 20161013
  Receipt Date: 20161031
  Transmission Date: 20170207
  Serious: Yes (Other)
  Sender: FDA-Public Use
  Company Number: IT-JNJFOC-20161005866

PATIENT
  Age: 76 Year
  Sex: Female

DRUGS (2)
  1. IMBRUVICA [Suspect]
     Active Substance: IBRUTINIB
     Indication: CHRONIC LYMPHOCYTIC LEUKAEMIA
     Route: 048
  2. BACTRIM [Concomitant]
     Active Substance: SULFAMETHOXAZOLE\TRIMETHOPRIM
     Indication: LUNG DISORDER
     Route: 065

REACTIONS (6)
  - Asthenia [Unknown]
  - Dysphonia [Unknown]
  - Hypotension [Unknown]
  - Oropharyngeal pain [Unknown]
  - Haematochezia [Unknown]
  - Liver function test abnormal [Not Recovered/Not Resolved]
